FAERS Safety Report 9648205 (Version 1)
Quarter: 2013Q4

REPORT INFORMATION
  Report Type: Spontaneous
  Country: US (occurrence: None)
  Receive Date: 20131024
  Receipt Date: 20131024
  Transmission Date: 20140711
  Serious: Yes (Other)
  Sender: FDA-Public Use
  Company Number: None

PATIENT
  Age: 62 Year
  Sex: Female
  Weight: 58.97 kg

DRUGS (9)
  1. KETOCONAZOLE 2%, SHAMPOO [Suspect]
     Indication: DERMATITIS CONTACT
     Dosage: APPLY TWICE DAILY LEAVE ON 5 MIN., RINSE PHARMACY INSTRUCTIONS
     Route: 061
     Dates: start: 20130925, end: 20130926
  2. KETOCONAZOLE 2%, SHAMPOO [Suspect]
     Dosage: APPLY TWICE DAILY LEAVE ON 5 MIN., RINSE PHARMACY INSTRUCTIONS
     Route: 061
     Dates: start: 20130925, end: 20130926
  3. RAMIPRIL [Concomitant]
  4. LOVASTATIN [Concomitant]
  5. VENTOLIN [Concomitant]
  6. FLOVENT [Concomitant]
  7. OMEPRAZOLE [Concomitant]
  8. DESONIDE .05% [Concomitant]
  9. VITAMIN B12 [Concomitant]

REACTIONS (6)
  - Thermal burn [None]
  - Eye pruritus [None]
  - Ocular hyperaemia [None]
  - Erythema [None]
  - Urticaria [None]
  - Eye swelling [None]
